FAERS Safety Report 5924062-5 (Version None)
Quarter: 2008Q4

REPORT INFORMATION
  Report Type: 
  Country: None (occurrence: None)
  Receive Date: 20081020
  Receipt Date: 20081014
  Transmission Date: 20090506
  Serious: Yes (Hospitalization)
  Sender: FDA-Public Use
  Company Number: DE-SANOFI-SYNTHELABO-F04200800081

PATIENT
  Sex: Male

DRUGS (11)
  1. ALLOPURINOL [Concomitant]
     Indication: PROPHYLAXIS
     Dosage: UNK
     Route: 065
     Dates: start: 20080901, end: 20080905
  2. CIPRO [Concomitant]
     Indication: PROPHYLAXIS
     Dosage: UNK
     Route: 065
     Dates: start: 20080901, end: 20080912
  3. NOVALGIN [Concomitant]
     Indication: PAIN
     Dosage: UNK
     Route: 065
     Dates: start: 20080101, end: 20080905
  4. RITUXIMAB [Suspect]
     Indication: DIFFUSE LARGE B-CELL LYMPHOMA
     Route: 041
     Dates: start: 20080818, end: 20080818
  5. ENZASTAURIN [Suspect]
     Indication: DIFFUSE LARGE B-CELL LYMPHOMA
     Dosage: 1125 MG
     Route: 048
     Dates: start: 20080505, end: 20080101
  6. ENZASTAURIN [Suspect]
     Route: 048
     Dates: start: 20080101, end: 20080917
  7. OXALIPLATIN [Suspect]
     Indication: DIFFUSE LARGE B-CELL LYMPHOMA
     Route: 041
     Dates: start: 20080729, end: 20080729
  8. GEMCITABINE [Suspect]
     Indication: DIFFUSE LARGE B-CELL LYMPHOMA
     Route: 041
     Dates: start: 20080819, end: 20080819
  9. ENOXAPARIN SODIUM [Concomitant]
     Indication: PROPHYLAXIS
     Dosage: UNK
     Route: 058
  10. SORTIS [Concomitant]
     Indication: HYPERLIPIDAEMIA
     Dosage: UNK
     Route: 048
  11. PANTOPRAZOLE SODIUM [Concomitant]
     Indication: PROPHYLAXIS
     Dosage: UNK
     Route: 048

REACTIONS (3)
  - BLOOD CREATININE INCREASED [None]
  - NEOPLASM PROGRESSION [None]
  - URINARY RETENTION [None]
